FAERS Safety Report 15727129 (Version 2)
Quarter: 2019Q1

REPORT INFORMATION
  Report Type: Spontaneous
  Country: CN (occurrence: CN)
  Receive Date: 20181217
  Receipt Date: 20190223
  Transmission Date: 20190417
  Serious: Yes (Other)
  Sender: FDA-Public Use
  Company Number: CN-AMGEN-CHNSP2018179680

PATIENT

DRUGS (2)
  1. G-LASTA [Suspect]
     Active Substance: PEGFILGRASTIM
     Indication: BREAST CANCER
     Dosage: UNK
     Route: 058
  2. GRAN [Suspect]
     Active Substance: FILGRASTIM
     Indication: BREAST CANCER
     Dosage: 5 MUG/KG, UNK
     Route: 065

REACTIONS (7)
  - Blood pressure increased [Unknown]
  - Pyrexia [Unknown]
  - Sciatica [Unknown]
  - Neutropenia [Unknown]
  - Lymphopenia [Unknown]
  - Diarrhoea [Unknown]
  - Anaemia [Unknown]
